FAERS Safety Report 16902501 (Version 3)
Quarter: 2023Q4

REPORT INFORMATION
  Report Type: Spontaneous
  Country: US (occurrence: US)
  Receive Date: 20191010
  Receipt Date: 20231227
  Transmission Date: 20240110
  Serious: Yes (Other)
  Sender: FDA-Public Use
  Company Number: US-PFIZER INC-2019331918

PATIENT
  Age: 78 Year
  Sex: Female
  Weight: 50.794 kg

DRUGS (4)
  1. IBRANCE [Suspect]
     Active Substance: PALBOCICLIB
     Indication: Breast cancer female
     Dosage: 125 MG, CYCLIC (THREE TIMES A DAY FOR 3 WEEKS EVERY 28 DAYS)
     Route: 048
  2. IBRANCE [Suspect]
     Active Substance: PALBOCICLIB
     Dosage: TAKE 1 CAPSULE BY MOUTH DAILY FOR 3 WEEKS. THEN 1 WEEK OFF, THEN REPEAT CYCLE
     Route: 048
     Dates: start: 20180425
  3. LETROZOLE [Concomitant]
     Active Substance: LETROZOLE
     Dosage: 2.5 MG, DAILY
     Route: 048
     Dates: start: 201804
  4. LETROZOLE [Concomitant]
     Active Substance: LETROZOLE
     Dosage: 2.5 MG, DAILY
     Route: 048
     Dates: start: 20181112

REACTIONS (3)
  - Cataract [Unknown]
  - Off label use [Unknown]
  - Product prescribing error [Unknown]
